FAERS Safety Report 8424587-7 (Version None)
Quarter: 2012Q2

REPORT INFORMATION
  Report Type: 
  Country: None (occurrence: None)
  Receive Date: 20120611
  Receipt Date: 20120530
  Transmission Date: 20120825
  Serious: Yes (Hospitalization)
  Sender: FDA-Public Use
  Company Number: JP-NOVOPROD-352560

PATIENT
  Age: 76 Year
  Sex: Male
  Weight: 78 kg

DRUGS (15)
  1. PRAVASTATIN SODIUM [Concomitant]
  2. OLMESARTAN MEDOXOMIL [Concomitant]
     Dosage: 20 MG, QD
     Route: 048
  3. VICTOZA [Suspect]
     Dosage: 0.9 MG, QD
     Route: 058
     Dates: start: 20120425, end: 20120523
  4. VICTOZA [Suspect]
     Indication: TYPE 2 DIABETES MELLITUS
     Dosage: 0.6 MG, QD
     Route: 058
     Dates: start: 20120418
  5. VICTOZA [Suspect]
     Dosage: UNK
  6. CELEBREX [Concomitant]
  7. ALPROSTADIL ALFADEX [Concomitant]
  8. REZALTAS [Concomitant]
  9. AMARYL [Concomitant]
  10. LOXONIN [Concomitant]
  11. LYRICA [Concomitant]
  12. WARFARIN K [Concomitant]
  13. PLAVIX [Concomitant]
  14. OMEPRAZOLE [Concomitant]
  15. VITAMIN B12 [Concomitant]

REACTIONS (2)
  - DIVERTICULUM INTESTINAL [None]
  - DIVERTICULAR PERFORATION [None]
